FAERS Safety Report 4750520-5 (Version None)
Quarter: 2005Q3

REPORT INFORMATION
  Report Type: 
  Country: None (occurrence: None)
  Receive Date: 20050819
  Receipt Date: 20050802
  Transmission Date: 20060218
  Serious: Yes (Hospitalization, Disabling, Other)
  Sender: FDA-Public Use
  Company Number: WAES 0508AUS00027

PATIENT
  Age: 75 Year
  Sex: Male

DRUGS (4)
  1. COGENTIN [Suspect]
     Indication: PARKINSONISM
     Dosage: 2 MG/BID
     Route: 030
     Dates: start: 20050427, end: 20050428
  2. HEPARIN [Suspect]
     Dosage: SEE IMAGE
     Route: 042
     Dates: start: 20050414, end: 20050414
  3. HEPARIN [Suspect]
     Dosage: SEE IMAGE
     Route: 042
     Dates: start: 20050414, end: 20050420
  4. HALOPERIDOL [Suspect]
     Indication: CONFUSIONAL STATE
     Dosage: 10 MG/1X
     Route: 030
     Dates: start: 20050425, end: 20050425

REACTIONS (9)
  - AGITATION POSTOPERATIVE [None]
  - ASTHENIA [None]
  - CEREBRAL INFARCTION [None]
  - CONFUSION POSTOPERATIVE [None]
  - DELIRIUM [None]
  - DRUG TOXICITY [None]
  - DYSARTHRIA [None]
  - DYSPHAGIA [None]
  - PARKINSONISM [None]
